FAERS Safety Report 5239963-3 (Version None)
Quarter: 2007Q1

REPORT INFORMATION
  Report Type: 
  Country: None (occurrence: None)
  Receive Date: 20070216
  Receipt Date: 20070207
  Transmission Date: 20070707
  Serious: Yes (Hospitalization, Other)
  Sender: FDA-Public Use
  Company Number: FR-PFIZER INC-2006136356

PATIENT
  Sex: Male
  Weight: 94 kg

DRUGS (9)
  1. SULFASALAZINE [Suspect]
     Indication: MUSCULOSKELETAL PAIN
     Dosage: DAILY DOSE:500MG
     Route: 048
  2. SULFASALAZINE [Suspect]
     Indication: RHEUMATOID ARTHRITIS
  3. PLAQUENIL [Suspect]
     Indication: MUSCULOSKELETAL PAIN
     Dosage: DAILY DOSE:200MG
  4. METHOTREXATE [Suspect]
     Indication: MUSCULOSKELETAL PAIN
     Dosage: DAILY DOSE:10MG
  5. APROVEL [Concomitant]
     Indication: HYPERTENSION
     Route: 048
  6. KARDEGIC [Concomitant]
     Route: 048
  7. TAHOR [Concomitant]
     Indication: HYPERCHOLESTEROLAEMIA
     Route: 048
  8. EUPANTOL [Concomitant]
     Route: 048
  9. METHOTREXATE [Concomitant]
     Route: 048
     Dates: start: 20060527

REACTIONS (6)
  - ABDOMINAL PAIN UPPER [None]
  - BLOOD CREATINE PHOSPHOKINASE INCREASED [None]
  - BLOOD CREATINE PHOSPHOKINASE MB INCREASED [None]
  - CARDIAC FAILURE ACUTE [None]
  - ERUCTATION [None]
  - INFARCTION [None]
